FAERS Safety Report 9200751 (Version 1)
Quarter: 2013Q1

REPORT INFORMATION
  Report Type: Spontaneous
  Country: US (occurrence: None)
  Receive Date: 20130328
  Receipt Date: 20130328
  Transmission Date: 20140127
  Serious: Yes (Hospitalization)
  Sender: FDA-Public Use
  Company Number: None

PATIENT
  Age: 48 Year
  Sex: Female
  Weight: 85 kg

DRUGS (7)
  1. ESTRADIOL 1 MG [Suspect]
     Indication: AFFECTIVE DISORDER
     Dosage: PRIOR TO ADMISSION 1 MG DAILY PO
     Route: 048
  2. HYDROCODONE/ACETAMINOPHEN [Concomitant]
  3. ENALAPRIL [Concomitant]
  4. OMEPRAZOLE [Concomitant]
  5. GABAPENTIN [Concomitant]
  6. LORATADINE [Concomitant]
  7. LIDOCAINE PATCH [Concomitant]

REACTIONS (7)
  - Headache [None]
  - Nausea [None]
  - Paraesthesia [None]
  - Cognitive disorder [None]
  - Cerebrovascular accident [None]
  - Retinal artery occlusion [None]
  - Blindness unilateral [None]
